FAERS Safety Report 15141335 (Version 6)
Quarter: 2018Q4

REPORT INFORMATION
  Report Type: Report from Study
  Country: FR (occurrence: FR)
  Receive Date: 20180713
  Receipt Date: 20181018
  Transmission Date: 20190204
  Serious: Yes (Life-Threatening, Hospitalization, Other)
  Sender: FDA-Public Use
  Company Number: FR-ROCHE-2147413

PATIENT
  Age: 64 Year
  Sex: Female
  Weight: 65 kg

DRUGS (8)
  1. DIFFU K [Concomitant]
     Active Substance: POTASSIUM CHLORIDE
     Indication: RENAL FAILURE
     Dosage: DOSE 1 (UNKNOWN)
     Route: 048
     Dates: start: 20180627, end: 20180707
  2. NORMACOL [Concomitant]
     Active Substance: HERBALS\KARAYA GUM
     Indication: CONSTIPATION
     Route: 048
     Dates: start: 20180708, end: 20180708
  3. PARACETAMOL [Concomitant]
     Active Substance: ACETAMINOPHEN
     Indication: PAIN
  4. COBIMETINIB. [Suspect]
     Active Substance: COBIMETINIB
     Indication: MALIGNANT MELANOMA
     Dosage: DATE OF MOST RECENT DOSE OF COBIMETINIB PRIOR TO ONSET OF  INTERSTITIAL PNEUMOPATHY AND DIARRHEA BEC
     Route: 048
     Dates: start: 20180612
  5. MORPHINE [Concomitant]
     Active Substance: MORPHINE
     Indication: MYALGIA
     Route: 042
     Dates: start: 20180627, end: 20180627
  6. MORPHINE [Concomitant]
     Active Substance: MORPHINE
     Route: 042
     Dates: start: 20180627, end: 20180628
  7. DOLIPRANE [Concomitant]
     Active Substance: ACETAMINOPHEN
     Indication: PYREXIA
     Route: 048
     Dates: start: 20180622
  8. ATEZOLIZUMAB. [Suspect]
     Active Substance: ATEZOLIZUMAB
     Indication: MALIGNANT MELANOMA
     Dosage: DATE OF MOST RECENT DOSE OF ATEZOLIZUMAB PRIOR TO AE ONSET:12/JUN/2018
     Route: 042
     Dates: start: 20180612

REACTIONS (3)
  - Interstitial lung disease [Recovered/Resolved]
  - Diarrhoea [Recovered/Resolved]
  - Rhabdomyolysis [Recovered/Resolved]

NARRATIVE: CASE EVENT DATE: 20180622
